FAERS Safety Report 8349005-9 (Version None)
Quarter: 2012Q2

REPORT INFORMATION
  Report Type: 
  Country: None (occurrence: None)
  Receive Date: 20120508
  Receipt Date: 20120426
  Transmission Date: 20120825
  Serious: Yes (Hospitalization, Other)
  Sender: FDA-Public Use
  Company Number: KAD201204-000257

PATIENT
  Age: 27 Year
  Sex: Female

DRUGS (4)
  1. PEGINTERFERON ALFA-2A [Suspect]
     Indication: HEPATITIS C
     Dosage: 180 UG ONCE WEEKLY
  2. RIBAVIRIN [Suspect]
     Indication: HEPATITIS C
     Dosage: 1.0 G/DAY
  3. METHIMAZOLE [Suspect]
     Indication: HYPERTHYROIDISM
     Dosage: 20 MG/DAY
  4. PROPYLTHIOURACIL [Suspect]
     Indication: HYPERTHYROIDISM
     Dosage: 50 MG/DAY

REACTIONS (17)
  - ARTHRALGIA [None]
  - HAEMOGLOBIN DECREASED [None]
  - THROMBOCYTOPENIA [None]
  - PALLOR [None]
  - CHILLS [None]
  - AGRANULOCYTOSIS [None]
  - OROPHARYNGEAL PAIN [None]
  - EOSINOPHIL COUNT DECREASED [None]
  - EPISTAXIS [None]
  - NASOPHARYNGITIS [None]
  - ASTHENIA [None]
  - PYREXIA [None]
  - HYPERTHYROIDISM [None]
  - OEDEMA MUCOSAL [None]
  - BAND NEUTROPHIL PERCENTAGE DECREASED [None]
  - NEUTROPHIL PERCENTAGE DECREASED [None]
  - MONOCYTE PERCENTAGE INCREASED [None]
